FAERS Safety Report 8803520 (Version 1)
Quarter: 2012Q4

REPORT INFORMATION
  Report Type: 
  Country: US (occurrence: US)
  Receive Date: 20120924
  Receipt Date: 20120924
  Transmission Date: 20130627
  Serious: Yes (Other)
  Sender: FDA-Public Use
  Company Number: PHEH2012US018149

PATIENT
  Sex: Female

DRUGS (30)
  1. DIOVAN [Suspect]
  2. CRAZACHO [Concomitant]
  3. ALPRAZOLAM [Concomitant]
     Dosage: 1 mg, UNK
  4. ACETYLSALICYLIC ACID [Concomitant]
     Dosage: 320 mg, UNK
  5. LOTREMIN [Concomitant]
  6. DESVENLAFAXINE [Concomitant]
     Dosage: 50 mg, UNK
  7. DIPHENOXYLATE [Concomitant]
     Dosage: 4 DF per day
  8. FLONASE [Concomitant]
  9. FUROSEMIDE [Concomitant]
     Dosage: 20 mg, UNK
  10. GLUCOSAMINE /CHONDROITIN /MSM [Concomitant]
  11. INSULIN [Concomitant]
     Dosage: UNK UKN, UNK
  12. B COMPLEX [Concomitant]
  13. CLOTRIMAZOLE [Concomitant]
     Dosage: 1 %, UNK
  14. LOMOTIL [Concomitant]
     Dosage: 4 DF per day
  15. FLUTICASONE [Concomitant]
     Dosage: 50 ug, UNK
  16. HYDROCODONE [Concomitant]
     Dosage: 10 mg, UNK
  17. ACETAMINOPHEN [Concomitant]
  18. INSULIN GLARGINE [Concomitant]
     Dosage: 100 U, BID
  19. INSULIN LISPRO [Concomitant]
     Dosage: 100 unit per day
  20. METOPROLOL [Concomitant]
     Dosage: 25 mg, UNK
  21. NIFEDIPINE [Concomitant]
     Dosage: 90 mg, UNK
  22. NITROGLYCERIN [Concomitant]
     Dosage: 04 mg, PRN
  23. OMEPRAZOL [Concomitant]
     Dosage: 20 mg, UNK
  24. PRASUGREL [Concomitant]
     Dosage: 10 mg, UNK
  25. ACEDIFIDIMINE [Concomitant]
     Dosage: 320 mg, UNK
  26. PRAVASTATIN [Concomitant]
     Dosage: 80 mg, UNK
  27. TRIAMCINOLONE [Concomitant]
     Dosage: 0.1 UKN, UNK
  28. TRIAMTERENE [Concomitant]
     Dosage: 1 DF, UNK
  29. HYDROCHLOROTHIAZIDE [Concomitant]
     Dosage: 25 mg, UNK
  30. ZOLPIDEM [Concomitant]
     Dosage: 10 mg, UNK

REACTIONS (7)
  - Arterial occlusive disease [Unknown]
  - Breast cancer [Unknown]
  - Carpal tunnel syndrome [Unknown]
  - High density lipoprotein increased [Unknown]
  - Low density lipoprotein increased [Unknown]
  - Arthritis [Unknown]
  - Back pain [Unknown]
